FAERS Safety Report 7958699-9 (Version None)
Quarter: 2011Q4

REPORT INFORMATION
  Report Type: 
  Country: None (occurrence: None)
  Receive Date: 20111206
  Receipt Date: 20111130
  Transmission Date: 20120403
  Serious: Yes (Other)
  Sender: FDA-Public Use
  Company Number: US-TEVA-311372USA

PATIENT
  Sex: Female

DRUGS (1)
  1. PROPRANOLOL [Suspect]
     Indication: MITRAL VALVE PROLAPSE
     Dosage: 40 MILLIGRAM;

REACTIONS (5)
  - DRUG INEFFECTIVE [None]
  - ANGINA PECTORIS [None]
  - EAR DISCOMFORT [None]
  - PALPITATIONS [None]
  - THROMBOSIS [None]
